FAERS Safety Report 8446557-5 (Version None)
Quarter: 2012Q2

REPORT INFORMATION
  Report Type: 
  Country: None (occurrence: None)
  Receive Date: 20120618
  Receipt Date: 20120611
  Transmission Date: 20120825
  Serious: Yes (Other)
  Sender: FDA-Public Use
  Company Number: CHPA2012NO011511

PATIENT
  Age: 37 Year
  Sex: Female

DRUGS (1)
  1. OTRIVIN [Suspect]
     Dosage: UNK, FOR MANY MONTHS
     Route: 065

REACTIONS (2)
  - DRUG DEPENDENCE [None]
  - INCORRECT DRUG ADMINISTRATION DURATION [None]
